FAERS Safety Report 17211395 (Version 1)
Quarter: 2019Q4

REPORT INFORMATION
  Report Type: Spontaneous
  Country: FR (occurrence: FR)
  Receive Date: 20191228
  Receipt Date: 20191228
  Transmission Date: 20200122
  Serious: Yes (Other)
  Sender: FDA-Public Use
  Company Number: FR-BRISTOL-MYERS SQUIBB COMPANY-BMS-2019-121829

PATIENT
  Age: 73 Year
  Sex: Male

DRUGS (1)
  1. NIVOLUMAB [Suspect]
     Active Substance: NIVOLUMAB
     Indication: METASTATIC MALIGNANT MELANOMA
     Dosage: UNK
     Route: 065

REACTIONS (6)
  - Hepatitis cholestatic [Unknown]
  - Cytomegalovirus gastritis [Unknown]
  - Stenosis [Unknown]
  - Hepatitis [Unknown]
  - Gastric ulcer [Unknown]
  - Pancreatitis acute [Unknown]
